FAERS Safety Report 4558997-5 (Version None)
Quarter: 2005Q1

REPORT INFORMATION
  Report Type: 
  Country: None (occurrence: None)
  Receive Date: 20050124
  Receipt Date: 20050113
  Transmission Date: 20050727
  Serious: Yes (Other)
  Sender: FDA-Public Use
  Company Number: PHEH2005US00856

PATIENT
  Sex: 0

DRUGS (1)
  1. AREDIA [Suspect]

REACTIONS (1)
  - PATHOLOGICAL FRACTURE [None]
